FAERS Safety Report 7970866-7 (Version None)
Quarter: 2011Q4

REPORT INFORMATION
  Report Type: 
  Country: None (occurrence: None)
  Receive Date: 20111212
  Receipt Date: 20111114
  Transmission Date: 20120403
  Serious: Yes (Other)
  Sender: FDA-Public Use
  Company Number: JP-GLAXOSMITHKLINE-B0761509A

PATIENT
  Age: 52 Year
  Sex: Female

DRUGS (7)
  1. CARBOPLATIN [Concomitant]
     Route: 042
     Dates: start: 20110325, end: 20110519
  2. ALOXI [Concomitant]
     Indication: PROPHYLAXIS OF NAUSEA AND VOMITING
     Dosage: .75MG PER DAY
     Route: 042
     Dates: start: 20110815
  3. HYCAMTIN [Suspect]
     Indication: OVARIAN CANCER
     Route: 042
     Dates: start: 20110711
  4. GRANISETRON [Concomitant]
     Indication: PROPHYLAXIS OF NAUSEA AND VOMITING
     Dosage: 3MG PER DAY
     Route: 042
     Dates: start: 20110912, end: 20111017
  5. STEROID [Concomitant]
     Route: 065
  6. BLOOD TRANSFUSION [Concomitant]
     Route: 065
  7. DEXAMETHASONE SODIUM PHOSPHATE [Concomitant]
     Indication: PROPHYLAXIS OF NAUSEA AND VOMITING
     Dosage: 3.3MG PER DAY
     Route: 042
     Dates: start: 20110815, end: 20111021

REACTIONS (2)
  - VISUAL ACUITY REDUCED [None]
  - VITREOUS FLOATERS [None]
